FAERS Safety Report 6626607-9 (Version None)
Quarter: 2010Q1

REPORT INFORMATION
  Report Type: 
  Country: None (occurrence: None)
  Receive Date: 20100309
  Receipt Date: 20100309
  Transmission Date: 20100710
  Serious: Yes (Other)
  Sender: FDA-Public Use
  Company Number: None

PATIENT
  Sex: Female
  Weight: 72.5755 kg

DRUGS (4)
  1. CATAPRES-TTS-1 [Suspect]
     Indication: HYPERTENSION
     Dosage: NONE ONCE A WEEK TRANSDERMAL
     Route: 062
     Dates: start: 20091117, end: 20091122
  2. DIPHENHYDRAMINE 25 MG DON'T KNOW [Suspect]
     Indication: FOOD ALLERGY
     Dosage: 25 MG EVERY DAY, AS NEED PO
     Route: 048
     Dates: start: 20091209, end: 20091209
  3. DIPHENHYDRAMINE 25 MG DON'T KNOW [Suspect]
     Indication: PRURITUS
     Dosage: 25 MG EVERY DAY, AS NEED PO
     Route: 048
     Dates: start: 20091209, end: 20091209
  4. DIPHENHYDRAMINE 25 MG DON'T KNOW [Suspect]
     Indication: URTICARIA
     Dosage: 25 MG EVERY DAY, AS NEED PO
     Route: 048
     Dates: start: 20091209, end: 20091209

REACTIONS (8)
  - ANGINA PECTORIS [None]
  - FATIGUE [None]
  - FEAR [None]
  - FEELING ABNORMAL [None]
  - GAIT DISTURBANCE [None]
  - PAIN IN JAW [None]
  - SOMNOLENCE [None]
  - VERTIGO [None]
